FAERS Safety Report 17783219 (Version 1)
Quarter: 2020Q2

REPORT INFORMATION
  Report Type: Spontaneous
  Country: US (occurrence: US)
  Receive Date: 20200513
  Receipt Date: 20200513
  Transmission Date: 20200714
  Serious: Yes (Other)
  Sender: FDA-Public Use
  Company Number: US-PFIZER INC-2020190331

PATIENT
  Age: 77 Year
  Sex: Female

DRUGS (2)
  1. GABAPENTIN. [Suspect]
     Active Substance: GABAPENTIN
     Dosage: 500 MG, 2X/DAY (TWICE DAILY ON HOSPITAL DAY SIX)
  2. GABAPENTIN. [Suspect]
     Active Substance: GABAPENTIN
     Dosage: 1200 MG, 3X/DAY (1200 MG THREE TIMES DAILY)

REACTIONS (4)
  - Mental status changes [Unknown]
  - Encephalopathy [Recovered/Resolved]
  - Drug withdrawal syndrome [Recovered/Resolved]
  - Withdrawal catatonia [Recovered/Resolved]
